FAERS Safety Report 5693583-5 (Version None)
Quarter: 2008Q2

REPORT INFORMATION
  Report Type: 
  Country: None (occurrence: None)
  Receive Date: 20080401
  Receipt Date: 20080401
  Transmission Date: 20081010
  Serious: Yes (Hospitalization)
  Sender: FDA-Public Use
  Company Number: None

PATIENT
  Age: 75 Year
  Sex: Male
  Weight: 67.13 kg

DRUGS (2)
  1. MOXIFLOXACIN HCL [Suspect]
     Indication: PNEUMONIA
     Dosage: 400MG EVERY DAY IV
     Route: 042
     Dates: start: 20080126, end: 20080129
  2. MOXIFLOXACIN HCL [Suspect]
     Indication: PNEUMONIA
     Dosage: 400MG EVERY DAY PO
     Route: 048
     Dates: start: 20080130, end: 20080131

REACTIONS (3)
  - CONFUSIONAL STATE [None]
  - CONVULSION [None]
  - NEUROTOXICITY [None]
